FAERS Safety Report 7589774-9 (Version None)
Quarter: 2011Q3

REPORT INFORMATION
  Report Type: 
  Country: None (occurrence: None)
  Receive Date: 20110705
  Receipt Date: 20110620
  Transmission Date: 20111222
  Serious: Yes (Other)
  Sender: FDA-Public Use
  Company Number: ES-WATSON-2011-09795

PATIENT
  Age: 82 Year
  Sex: Female

DRUGS (1)
  1. HEPARIN SODIUM [Suspect]
     Indication: SKIN TEST
     Dosage: UNK

REACTIONS (2)
  - TYPE IV HYPERSENSITIVITY REACTION [None]
  - DRUG HYPERSENSITIVITY [None]
